FAERS Safety Report 8637384 (Version 3)
Quarter: 2013Q2

REPORT INFORMATION
  Report Type: Spontaneous
  Country: CA (occurrence: CA)
  Receive Date: 20120627
  Receipt Date: 20130604
  Transmission Date: 20140414
  Serious: Yes (Hospitalization)
  Sender: FDA-Public Use
  Company Number: CA-JNJFOC-20120608738

PATIENT
  Age: 36 Year
  Sex: Male
  Weight: 58.97 kg

DRUGS (5)
  1. REMICADE [Suspect]
     Indication: CROHN^S DISEASE
     Dosage: RECEIVED APPROXIMATELY 6 INFUSIONS
     Route: 042
     Dates: start: 20120827
  2. REMICADE [Suspect]
     Indication: CROHN^S DISEASE
     Route: 042
     Dates: start: 20120103
  3. REMICADE [Suspect]
     Indication: CROHN^S DISEASE
     Route: 042
     Dates: start: 201112
  4. HYDROMORPHONE [Concomitant]
     Route: 065
  5. MORPHINE [Concomitant]
     Route: 065

REACTIONS (6)
  - Intestinal resection [Recovered/Resolved]
  - Cystitis [Recovered/Resolved]
  - Abdominal pain upper [Recovered/Resolved]
  - Abdominal abscess [Recovered/Resolved]
  - Gastrointestinal fistula [Recovered/Resolved]
  - Vesical fistula [Recovered/Resolved]
